FAERS Safety Report 10996994 (Version 1)
Quarter: 2015Q2

REPORT INFORMATION
  Report Type: Spontaneous
  Country: US (occurrence: None)
  Receive Date: 20150406
  Receipt Date: 20150406
  Transmission Date: 20150821
  Serious: Yes (Death, Other)
  Sender: FDA-Public Use
  Company Number: ADR-2015-00642

PATIENT
  Sex: Female

DRUGS (3)
  1. COMPOUNDED BACLOFEN INTRATHECAL - 400 MCG/ML [Suspect]
     Active Substance: BACLOFEN
  2. FENTANYL INTRATHECAL-1000.0 MCG/ML [Suspect]
     Active Substance: FENTANYL
  3. BUPIVACAINE INTRATHECAL [Suspect]
     Active Substance: BUPIVACAINE

REACTIONS (2)
  - Metastatic neoplasm [None]
  - Disease complication [None]
